FAERS Safety Report 14952576 (Version 11)
Quarter: 2024Q1

REPORT INFORMATION
  Report Type: Spontaneous
  Country: US (occurrence: US)
  Receive Date: 20180530
  Receipt Date: 20240307
  Transmission Date: 20240409
  Serious: Yes (Other)
  Sender: FDA-Public Use
  Company Number: US-PFIZER INC-2018214715

PATIENT
  Age: 67 Year
  Sex: Female
  Weight: 87 kg

DRUGS (4)
  1. XELJANZ XR [Suspect]
     Active Substance: TOFACITINIB CITRATE
     Indication: Rheumatoid arthritis
     Dosage: 11 MG, DAILY
     Route: 048
     Dates: start: 201704
  2. XELJANZ XR [Suspect]
     Active Substance: TOFACITINIB CITRATE
     Dosage: 11 MG, 1X/DAY (5 OR 6 YEARS AGO/ 4 YRS AGO)
  3. METHOTREXATE [Concomitant]
     Active Substance: METHOTREXATE
     Dosage: UNK, 6 PER WEEK
     Dates: start: 2013, end: 20231101
  4. METOPROLOL TARTRATE [Concomitant]
     Active Substance: METOPROLOL TARTRATE
     Dosage: 50 MG, 2X/DAY

REACTIONS (6)
  - Cystitis [Recovered/Resolved]
  - Therapeutic product effect delayed [Unknown]
  - Weight increased [Recovered/Resolved]
  - Hypersensitivity [Unknown]
  - Sinusitis [Unknown]
  - Muscle disorder [Unknown]

NARRATIVE: CASE EVENT DATE: 20170101
